FAERS Safety Report 7462322-X (Version None)
Quarter: 2011Q2

REPORT INFORMATION
  Report Type: 
  Country: None (occurrence: None)
  Receive Date: 20110506
  Receipt Date: 20101005
  Transmission Date: 20111010
  Serious: No
  Sender: FDA-Public Use
  Company Number: US-BAYER-201038675NA

PATIENT
  Sex: Female

DRUGS (2)
  1. PLAN B [Concomitant]
     Dosage: UNK
     Dates: start: 20101001
  2. YAZ [Suspect]
     Dosage: UNK
     Dates: start: 20090101

REACTIONS (2)
  - AMENORRHOEA [None]
  - DIARRHOEA [None]
